FAERS Safety Report 22283236 (Version 1)
Quarter: 2023Q2

REPORT INFORMATION
  Report Type: Spontaneous
  Country: CA (occurrence: CA)
  Receive Date: 20230504
  Receipt Date: 20230504
  Transmission Date: 20230722
  Serious: Yes (Other)
  Sender: FDA-Public Use
  Company Number: CA-JNJFOC-20230465302

PATIENT
  Age: 53 Year
  Sex: Female
  Weight: 80 kg

DRUGS (13)
  1. REMICADE [Suspect]
     Active Substance: INFLIXIMAB
     Indication: Hidradenitis
     Route: 041
  2. INFLIXIMAB [Suspect]
     Active Substance: INFLIXIMAB
     Indication: Hidradenitis
     Route: 042
  3. INFLIXIMAB [Suspect]
     Active Substance: INFLIXIMAB
     Route: 042
  4. INFLIXIMAB [Suspect]
     Active Substance: INFLIXIMAB
     Route: 042
  5. INFLIXIMAB [Suspect]
     Active Substance: INFLIXIMAB
     Route: 042
  6. INFLIXIMAB [Suspect]
     Active Substance: INFLIXIMAB
     Route: 042
  7. CLINDAMYCIN [Concomitant]
     Active Substance: CLINDAMYCIN
     Route: 061
  8. CLINDAMYCIN [Concomitant]
     Active Substance: CLINDAMYCIN
     Route: 061
  9. CYMBALTA [Concomitant]
     Active Substance: DULOXETINE HYDROCHLORIDE
  10. DEXILANT [Concomitant]
     Active Substance: DEXLANSOPRAZOLE
  11. DEXILANT [Concomitant]
     Active Substance: DEXLANSOPRAZOLE
     Route: 065
  12. FUSIDIC ACID [Concomitant]
     Active Substance: FUSIDIC ACID
     Route: 061
  13. HYDROMORPHONE HYDROCHLORIDE [Concomitant]
     Active Substance: HYDROMORPHONE HYDROCHLORIDE

REACTIONS (7)
  - Throat irritation [Recovered/Resolved]
  - Infection [Recovered/Resolved]
  - Subcutaneous abscess [Recovered/Resolved]
  - Headache [Recovered/Resolved]
  - Intentional product use issue [Recovered/Resolved]
  - Incorrect dose administered [Recovered/Resolved]
  - Off label use [Recovered/Resolved]
